FAERS Safety Report 15989810 (Version 4)
Quarter: 2021Q4

REPORT INFORMATION
  Report Type: Other
  Country: CZ (occurrence: CZ)
  Receive Date: 20190221
  Receipt Date: 20211104
  Transmission Date: 20220303
  Serious: Yes (Other)
  Sender: FDA-Public Use
  Company Number: CZ-NOVPHSZ-PHHY2019CZ032649

PATIENT
  Age: 38 Year
  Sex: Female

DRUGS (7)
  1. BEVACIZUMAB [Suspect]
     Active Substance: BEVACIZUMAB
     Indication: Lung adenocarcinoma
     Route: 065
     Dates: end: 201610
  2. BEVACIZUMAB [Suspect]
     Active Substance: BEVACIZUMAB
     Indication: Non-small cell lung cancer
  3. NAVELBINE [Suspect]
     Active Substance: VINORELBINE TARTRATE
     Indication: Lung adenocarcinoma
     Route: 065
     Dates: start: 2015
  4. NAVELBINE [Suspect]
     Active Substance: VINORELBINE TARTRATE
     Indication: Non-small cell lung cancer
     Route: 065
     Dates: start: 201610
  5. CISPLATIN [Suspect]
     Active Substance: CISPLATIN
     Indication: Lung adenocarcinoma
     Route: 065
     Dates: start: 2015
  6. CISPLATIN [Suspect]
     Active Substance: CISPLATIN
     Indication: Non-small cell lung cancer
     Route: 065
     Dates: start: 2015, end: 201606
  7. CRIZOTINIB [Concomitant]
     Active Substance: CRIZOTINIB

REACTIONS (6)
  - Metastases to central nervous system [Recovering/Resolving]
  - Fatigue [Unknown]
  - Nausea [Unknown]
  - Toxicity to various agents [Unknown]
  - Disease progression [Recovered/Resolved]
  - Drug ineffective [Unknown]

NARRATIVE: CASE EVENT DATE: 20161001
